FAERS Safety Report 5596509-8 (Version None)
Quarter: 2007Q4

REPORT INFORMATION
  Report Type: 
  Country: None (occurrence: None)
  Receive Date: 20071219
  Receipt Date: 20070830
  Transmission Date: 20080405
  Serious: No
  Sender: FDA-Public Use
  Company Number: HQWYE031606SEP07

PATIENT
  Age: 46 Year
  Sex: Male

DRUGS (4)
  1. TORISEL [Suspect]
     Indication: RENAL CELL CARCINOMA STAGE UNSPECIFIED
     Dosage: 25 MG ON 30-AUG-2007, INTRAVENOUS
     Route: 042
  2. BENADRYL [Concomitant]
  3. ATIVAN [Concomitant]
  4. ZANTAC [Concomitant]

REACTIONS (1)
  - INFUSION SITE EXTRAVASATION [None]
